FAERS Safety Report 5355117-4 (Version None)
Quarter: 2007Q2

REPORT INFORMATION
  Report Type: 
  Country: None (occurrence: None)
  Receive Date: 20070613
  Receipt Date: 20070607
  Transmission Date: 20071010
  Serious: Yes (Other)
  Sender: FDA-Public Use
  Company Number: PHEH2007US05198

PATIENT
  Age: 70 Year
  Sex: Female
  Weight: 71.655 kg

DRUGS (9)
  1. ZELNORM [Suspect]
     Indication: CONSTIPATION
     Dosage: 1 DF, PRN
     Route: 048
     Dates: end: 20070329
  2. MAXIDEX [Concomitant]
     Dosage: 0.25 MG, QD
     Route: 048
  3. SYNTHROID [Concomitant]
     Indication: THYROID DISORDER
     Dosage: 25 MG, QD
     Route: 048
  4. PREDNISONE TAB [Concomitant]
     Dosage: 5 MG, QD
     Route: 048
  5. ZANAFLEX [Concomitant]
     Indication: MUSCLE RELAXANT THERAPY
     Dosage: 4 MG, QD, 1OR 2 AT BEDTIME
     Route: 048
  6. AMORAM [Concomitant]
     Dosage: 100 MG, QID
     Route: 048
  7. FLOMAX [Concomitant]
     Indication: CYSTITIS
     Dosage: 1, QD
     Route: 048
  8. DOXEPIN HCL [Concomitant]
     Dosage: 10 MG, QD 1 AT BEDTIME
     Route: 048
  9. NEURONTIN [Concomitant]
     Dosage: 50 MG, QD
     Route: 048

REACTIONS (9)
  - ANGER [None]
  - BALANCE DISORDER [None]
  - BLOOD PRESSURE INCREASED [None]
  - CHEST PAIN [None]
  - DECREASED ACTIVITY [None]
  - DYSPNOEA [None]
  - FALL [None]
  - HEART RATE INCREASED [None]
  - MALAISE [None]
